FAERS Safety Report 11540605 (Version 1)
Quarter: 2015Q3

REPORT INFORMATION
  Report Type: Spontaneous
  Country: US (occurrence: US)
  Receive Date: 20150923
  Receipt Date: 20150923
  Transmission Date: 20151125
  Serious: Yes (Other)
  Sender: FDA-Public Use
  Company Number: US-BEH-2015050831

PATIENT
  Age: 54 Year
  Sex: Female
  Weight: 62.77 kg

DRUGS (14)
  1. SYNTHROID [Concomitant]
     Active Substance: LEVOTHYROXINE SODIUM
  2. PRIVIGEN [Suspect]
     Active Substance: HUMAN IMMUNOGLOBULIN G
     Indication: DERMATOMYOSITIS
     Dosage: 6 MONTHS (STARTED PRIVIGEN ON 17-NOV-2014)  (20G ) 150 /HR INFUSION RATE
     Route: 042
     Dates: start: 20150415
  3. IVIG [Concomitant]
     Active Substance: HUMAN IMMUNOGLOBULIN G
  4. IBUPROFEN. [Concomitant]
     Active Substance: IBUPROFEN
  5. PRIVIGEN [Suspect]
     Active Substance: HUMAN IMMUNOGLOBULIN G
     Dosage: 6 MONTHS (STARTED HIZENTRA ON 17-NOV-2014) (10 G) (150/HR INFUSION RATE)
     Route: 042
     Dates: start: 20150415
  6. NORPRAMIN [Concomitant]
     Active Substance: DESIPRAMINE HYDROCHLORIDE
  7. VITAMIN B [Concomitant]
     Active Substance: VITAMIN B
  8. VITAMIN D [Concomitant]
     Active Substance: CHOLECALCIFEROL
  9. LEFLUNOMIDE. [Concomitant]
     Active Substance: LEFLUNOMIDE
     Indication: AUTOIMMUNE DISORDER
  10. DEHYDROEPIANDROSTERONE [Concomitant]
     Active Substance: PRASTERONE
  11. MYCOPHENOLATE [Concomitant]
     Active Substance: MYCOPHENOLIC ACID
     Indication: AUTOIMMUNE DISORDER
  12. BENICAR [Concomitant]
     Active Substance: OLMESARTAN MEDOXOMIL
  13. VITAMIN B12 [Concomitant]
     Active Substance: CYANOCOBALAMIN
  14. PREDNISONE. [Concomitant]
     Active Substance: PREDNISONE
     Indication: AUTOIMMUNE DISORDER

REACTIONS (5)
  - Headache [Recovered/Resolved]
  - Vomiting [Recovered/Resolved]
  - Meningitis aseptic [Recovered/Resolved]
  - Nausea [Recovered/Resolved]
  - Confusional state [Recovered/Resolved]

NARRATIVE: CASE EVENT DATE: 20150415
